FAERS Safety Report 24586121 (Version 1)
Quarter: 2024Q4

REPORT INFORMATION
  Report Type: Spontaneous
  Country: NL (occurrence: NL)
  Receive Date: 20241106
  Receipt Date: 20241106
  Transmission Date: 20250115
  Serious: Yes (Other)
  Sender: TEVA
  Company Number: None

PATIENT
  Age: 17 Year
  Sex: Female
  Weight: 65 kg

DRUGS (3)
  1. METOCLOPRAMIDE [Suspect]
     Active Substance: METOCLOPRAMIDE
     Indication: Nausea
     Dosage: 1 PIECE 3 TIMES A DAY;?BRAND NAME NOT SPECIFIED
     Route: 065
     Dates: start: 20240702, end: 20240822
  2. CALCIUM CARBONATE\CHOLECALCIFEROL [Concomitant]
     Active Substance: CALCIUM CARBONATE\CHOLECALCIFEROL
     Indication: Product used for unknown indication
     Dosage: 1.25 G (GRAM)/1000 UNITS;?CALCIUM CARB/COLECAL CHEW 1.25G/1000IE (500MG CA)/ 500MG/1000IE
     Route: 065
  3. ETHINYL ESTRADIOL\LEVONORGESTREL [Concomitant]
     Active Substance: ETHINYL ESTRADIOL\LEVONORGESTREL
     Indication: Product used for unknown indication
     Dosage: 30/150 ?G (MICROGRAM);?30/150UG / BRAND NAME NOT SPECIFIED
     Route: 065

REACTIONS (4)
  - Depressed level of consciousness [Recovered/Resolved]
  - Salivary hypersecretion [Recovered/Resolved]
  - Galactorrhoea [Recovered/Resolved]
  - Extrapyramidal disorder [Recovered/Resolved]
